FAERS Safety Report 4771157-8 (Version None)
Quarter: 2005Q3

REPORT INFORMATION
  Report Type: 
  Country: None (occurrence: None)
  Receive Date: 20050912
  Receipt Date: 20050606
  Transmission Date: 20060218
  Serious: No
  Sender: FDA-Public Use
  Company Number: 2005-01132

PATIENT
  Age: 89 Year
  Sex: Female

DRUGS (7)
  1. VELCADE [Suspect]
     Indication: NON-HODGKIN'S LYMPHOMA
     Dosage: 2.10 MG
     Dates: start: 20050411, end: 20050502
  2. VELCADE [Suspect]
     Indication: NON-HODGKIN'S LYMPHOMA
     Dosage: 2.10 MG
     Dates: start: 20050512
  3. FOLIC ACID [Concomitant]
  4. CALTRATE (CALCIUM CARBONATE) [Concomitant]
  5. VITAMIN C (ASCORBIC ACID) [Concomitant]
  6. FOSAMAX [Concomitant]
  7. ALLOPURINOL [Concomitant]

REACTIONS (3)
  - HERPES ZOSTER [None]
  - PAIN [None]
  - SKIN LESION [None]
